FAERS Safety Report 7473959-6 (Version None)
Quarter: 2011Q2

REPORT INFORMATION
  Report Type: 
  Country: None (occurrence: None)
  Receive Date: 20110511
  Receipt Date: 20090306
  Transmission Date: 20111010
  Serious: Yes (Death, Other)
  Sender: FDA-Public Use
  Company Number: US-BAYER-201038710NA

PATIENT
  Age: 79 Year
  Sex: Female
  Weight: 65 kg

DRUGS (16)
  1. TRASYLOL [Suspect]
     Indication: AORTIC VALVE REPLACEMENT
     Dosage: 200 ML, 50ML/HR INFUSION
     Route: 042
     Dates: start: 20070129, end: 20070129
  2. LASIX [Concomitant]
     Dosage: 100MG
     Dates: start: 20070129
  3. ISOSORBIDE [ISOSORBIDE] [Concomitant]
     Dosage: 30MG
     Route: 048
  4. FRESH FROZEN PLASMA [Concomitant]
     Dosage: 4 UNITS
     Dates: start: 20070129
  5. ATENOLOL [Concomitant]
     Dosage: 50MG
     Route: 048
  6. ASACOL [Concomitant]
     Dosage: 400MG
     Route: 048
  7. INSULIN [INSULIN] [Concomitant]
     Dosage: DRIP
     Route: 042
     Dates: start: 20070129
  8. NITROGLYCERIN [Concomitant]
     Dosage: DRIP
     Dates: start: 20070129
  9. RED BLOOD CELLS, CONCENTRATED [Concomitant]
     Dosage: 3 UNITS
     Route: 042
     Dates: start: 20070129
  10. AGGRENOX [Concomitant]
     Dosage: 200/2.5
     Route: 048
  11. METAGLIP [Concomitant]
     Dosage: 5/500
     Route: 048
  12. ANCEF [Concomitant]
     Dosage: 1G
     Dates: start: 20070129
  13. URSO FORTE [Concomitant]
     Dosage: 500MG
     Route: 048
  14. LASIX [Concomitant]
     Dosage: 20MG
     Route: 048
  15. LEVOTHYROXINE SODIUM [Concomitant]
     Dosage: 112MCG
     Route: 048
  16. PLATELETS [Concomitant]
     Dosage: 2

REACTIONS (14)
  - CEREBROVASCULAR ACCIDENT [None]
  - RENAL FAILURE [None]
  - UNEVALUABLE EVENT [None]
  - RENAL INJURY [None]
  - PAIN [None]
  - MULTI-ORGAN FAILURE [None]
  - INJURY [None]
  - STRESS [None]
  - PNEUMONIA [None]
  - RENAL IMPAIRMENT [None]
  - ANXIETY [None]
  - FAILURE TO THRIVE [None]
  - HEPATIC CIRRHOSIS [None]
  - FEAR [None]
